FAERS Safety Report 7928139-4 (Version None)
Quarter: 2011Q4

REPORT INFORMATION
  Report Type: 
  Country: None (occurrence: None)
  Receive Date: 20111118
  Receipt Date: 20111111
  Transmission Date: 20120403
  Serious: Yes (Death, Life-Threatening, Other)
  Sender: FDA-Public Use
  Company Number: CA-ROXANE LABORATORIES, INC.-2011-RO-01640RO

PATIENT
  Age: 61 Year
  Sex: Female
  Weight: 66 kg

DRUGS (33)
  1. FUROSEMIDE [Suspect]
     Dosage: 40 MG
     Route: 048
  2. PIPERACILLIN AND TAZOBACTAM [Suspect]
  3. NOREPINEPHRINE BITARTRATE [Suspect]
     Indication: BLOOD PRESSURE MANAGEMENT
     Route: 042
  4. ALENDRONATE SODIUM [Concomitant]
     Route: 048
  5. FLUCONAZOLE [Suspect]
     Route: 048
  6. DESIPRAMIDE HCL [Suspect]
     Dosage: 50 MG
     Route: 048
  7. HALOPERIDOL [Suspect]
     Dosage: 20 MG
     Route: 048
  8. VASOPRESSIN [Suspect]
     Indication: BLOOD PRESSURE MANAGEMENT
     Route: 042
  9. FENTANYL-100 [Suspect]
     Indication: PAIN
  10. LOPERAMIDE HCL [Suspect]
     Route: 048
  11. HYDROCORTISONE [Suspect]
     Route: 042
  12. CYPROHEPTADINE HCL [Suspect]
     Indication: SEROTONIN SYNDROME
  13. LEVOTHYROXINE SODIUM [Concomitant]
     Dosage: 50 MCG
     Route: 048
  14. SUMATRIPTAN [Concomitant]
     Route: 048
  15. QUETIAPINE [Suspect]
     Dosage: 400 MG
     Route: 048
  16. TRAZODONE HCL [Suspect]
     Dosage: 200 MG
     Route: 048
  17. VENLAFAXINE [Suspect]
     Dosage: 150 MG
     Route: 048
  18. CONJUGATED ESTROGEN [Concomitant]
     Dosage: 1.3 MG
     Route: 048
  19. ALBUTEROL SULFATE AUTOHALER [Concomitant]
     Route: 048
  20. LORAZEPAM [Suspect]
     Dosage: 2 MG
     Route: 048
  21. ATORVASTATIN [Concomitant]
     Dosage: 10 MG
     Route: 048
  22. CYCLOBENZAPRINE [Concomitant]
     Route: 048
  23. RISPERIDONE [Suspect]
     Dosage: 5 MG
     Route: 048
  24. PREDNISONE TAB [Suspect]
     Dosage: 7.5 MG
     Route: 048
  25. CELECOXIB [Concomitant]
     Dosage: 400 MG
     Route: 048
  26. OMEPRAZOLE [Concomitant]
     Dosage: 40 MG
     Route: 048
  27. TRIMETHOPRIM + SULFAMETHOXAZOLE [Concomitant]
     Route: 048
  28. MIDAZOLAM [Suspect]
     Indication: ANXIETY
  29. BUDESONIDE [Suspect]
     Route: 055
  30. DANTROLENE SODIUM [Suspect]
     Indication: NEUROLEPTIC MALIGNANT SYNDROME
  31. HYDROXYCHLOROQUININE [Concomitant]
     Dosage: 400 MG
     Route: 048
  32. MOMETASONE FUROATE [Suspect]
  33. HYDROXYZINE [Concomitant]
     Dosage: 50 MG
     Route: 048

REACTIONS (5)
  - ELECTROLYTE IMBALANCE [None]
  - NEUROLEPTIC MALIGNANT SYNDROME [None]
  - DEATH [None]
  - RESPIRATORY FAILURE [None]
  - RENAL FAILURE [None]
